FAERS Safety Report 10462154 (Version 2)
Quarter: 2014Q3

REPORT INFORMATION
  Report Type: Spontaneous
  Country: US (occurrence: US)
  Receive Date: 20140918
  Receipt Date: 20140918
  Transmission Date: 20150326
  Serious: Yes (Death, Hospitalization)
  Sender: FDA-Public Use
  Company Number: US-GLAXOSMITHKLINE-A0871196A

PATIENT
  Sex: Female

DRUGS (1)
  1. AVANDIA [Suspect]
     Active Substance: ROSIGLITAZONE MALEATE
     Indication: DIABETES MELLITUS
     Dosage: 8MG PER DAY
     Route: 048
     Dates: start: 200302, end: 200508

REACTIONS (5)
  - Acute myocardial infarction [Fatal]
  - Chest pain [Unknown]
  - Cardiac arrest [Unknown]
  - Coronary artery disease [Unknown]
  - Pulmonary embolism [Unknown]
